FAERS Safety Report 6985971-1 (Version None)
Quarter: 2010Q3

REPORT INFORMATION
  Report Type: 
  Country: None (occurrence: None)
  Receive Date: 20100915
  Receipt Date: 20100907
  Transmission Date: 20110219
  Serious: Yes (Other)
  Sender: FDA-Public Use
  Company Number: US-ELI_LILLY_AND_COMPANY-US201009002063

PATIENT
  Sex: Male

DRUGS (5)
  1. HUMULIN R [Suspect]
     Indication: DIABETES MELLITUS
     Dosage: 32 U, 2/D
     Dates: start: 20100407
  2. HUMULIN R [Suspect]
     Dosage: 30 U, DAILY (1/D)
     Dates: start: 20100407
  3. LANTUS [Concomitant]
     Dosage: 50 U, EACH MORNING
  4. CORTICOSTEROIDS [Concomitant]
  5. ANTIBIOTICS [Concomitant]

REACTIONS (2)
  - BLOOD GLUCOSE INCREASED [None]
  - CHRONIC OBSTRUCTIVE PULMONARY DISEASE [None]
